FAERS Safety Report 12457888 (Version 2)
Quarter: 2016Q2

REPORT INFORMATION
  Report Type: Report from Study
  Country: JP (occurrence: JP)
  Receive Date: 20160612
  Receipt Date: 20160616
  Transmission Date: 20160815
  Serious: Yes (Other)
  Sender: FDA-Public Use
  Company Number: JP-TEVA-667349ISR

PATIENT
  Age: 74 Year
  Sex: Male

DRUGS (3)
  1. CLOPIDOGREL [Suspect]
     Active Substance: CLOPIDOGREL BISULFATE
     Indication: MYOCARDIAL INFARCTION
  2. PACLITAXEL. [Interacting]
     Active Substance: PACLITAXEL
     Indication: LUNG ADENOCARCINOMA STAGE III
     Dosage: WEEKLY, 6 COURSES; THE DOSE WAS 70.0 MG PER WEEK
  3. CARBOPLATIN. [Concomitant]
     Active Substance: CARBOPLATIN
     Indication: LUNG ADENOCARCINOMA STAGE III
     Dosage: WEEKLY, 6 COURSES

REACTIONS (4)
  - Leukopenia [Unknown]
  - Neutropenia [Unknown]
  - Drug interaction [Unknown]
  - Febrile neutropenia [Unknown]
